FAERS Safety Report 18440901 (Version 3)
Quarter: 2020Q4

REPORT INFORMATION
  Report Type: Spontaneous
  Country: US (occurrence: US)
  Receive Date: 20201029
  Receipt Date: 20201125
  Transmission Date: 20210114
  Serious: Yes (Other)
  Sender: FDA-Public Use
  Company Number: US-009507513-2010USA009615

PATIENT
  Age: 34 Year
  Sex: Female
  Weight: 67.12 kg

DRUGS (3)
  1. IMPLANON [Concomitant]
     Active Substance: ETONOGESTREL
     Dosage: 1 IMPLANT
     Route: 059
  2. IMPLANON [Concomitant]
     Active Substance: ETONOGESTREL
     Dosage: 1 IMPLANT
     Route: 059
  3. NEXPLANON [Suspect]
     Active Substance: ETONOGESTREL
     Dosage: 1 ROD EVERY 3 YEARS IN LEFT FOREARM
     Route: 059
     Dates: start: 201709, end: 20201022

REACTIONS (8)
  - Complication of device removal [Recovered/Resolved]
  - Incorrect product administration duration [Unknown]
  - Device breakage [Recovered/Resolved]
  - Medical device site fibrosis [Unknown]
  - Surgery [Unknown]
  - Device placement issue [Recovered/Resolved]
  - Medical device site bruise [Unknown]
  - Medical device site swelling [Unknown]

NARRATIVE: CASE EVENT DATE: 201709
